FAERS Safety Report 12635078 (Version 5)
Quarter: 2016Q4

REPORT INFORMATION
  Report Type: Spontaneous
  Country: US (occurrence: US)
  Receive Date: 20160808
  Receipt Date: 20161208
  Transmission Date: 20170207
  Serious: Yes (Other)
  Sender: FDA-Public Use
  Company Number: US-009507513-1608USA003656

PATIENT
  Age: 44 Year
  Sex: Female
  Weight: 87.98 kg

DRUGS (1)
  1. NEXPLANON [Suspect]
     Active Substance: ETONOGESTREL
     Indication: MENORRHAGIA
     Dosage: UNK
     Route: 059
     Dates: start: 20160519, end: 20160818

REACTIONS (4)
  - Hypoaesthesia [Recovering/Resolving]
  - Pain [Recovering/Resolving]
  - Migration of implanted drug [Recovered/Resolved]
  - Product use issue [Unknown]

NARRATIVE: CASE EVENT DATE: 2016
